FAERS Safety Report 7183153-4 (Version None)
Quarter: 2010Q4

REPORT INFORMATION
  Report Type: 
  Country: None (occurrence: None)
  Receive Date: 20101222
  Receipt Date: 20100621
  Transmission Date: 20110411
  Serious: No
  Sender: FDA-Public Use
  Company Number: US-PFIZER INC-2010077650

PATIENT
  Age: 63 Year
  Sex: Female
  Weight: 55 kg

DRUGS (5)
  1. HALCION [Suspect]
     Indication: INSOMNIA
     Dosage: UNK
  2. LUNESTA [Suspect]
     Indication: INSOMNIA
     Dosage: 3 MG, 1X/DAY AT NIGHT
     Route: 048
     Dates: start: 20100401, end: 20100401
  3. AMBIEN [Suspect]
     Indication: INSOMNIA
     Dosage: UNK
  4. SONATA [Suspect]
     Indication: INSOMNIA
     Dosage: UNK
  5. RESTORIL [Suspect]
     Indication: INSOMNIA
     Dosage: UNK

REACTIONS (1)
  - DRUG INEFFECTIVE [None]
